FAERS Safety Report 20161794 (Version 1)
Quarter: 2021Q4

REPORT INFORMATION
  Report Type: Report from Study
  Country: DE (occurrence: DE)
  Receive Date: 20211208
  Receipt Date: 20211208
  Transmission Date: 20220303
  Serious: Yes (Hospitalization, Other)
  Sender: FDA-Public Use
  Company Number: DE-SHIRE-SPV1-2012-00317

PATIENT
  Age: 11 Year
  Sex: Male
  Weight: 43 kg

DRUGS (10)
  1. IDURSULFASE [Suspect]
     Active Substance: IDURSULFASE
     Indication: Mucopolysaccharidosis II
     Dosage: 24 MG, 1X/WEEK
     Route: 041
     Dates: start: 20100427
  2. IDURSULFASE [Suspect]
     Active Substance: IDURSULFASE
     Dosage: UNK, UNKNOWN
     Route: 041
     Dates: start: 20060907
  3. IDURSULFASE [Suspect]
     Active Substance: IDURSULFASE
     Dosage: 18 MG, 1X/WEEK
     Route: 041
     Dates: start: 20060913
  4. IDURSULFASE [Suspect]
     Active Substance: IDURSULFASE
     Dosage: 0.54 MILLIGRAM/KILOGRAM, 1/WEEK
     Route: 042
     Dates: start: 20060907
  5. IDURSULFASE [Suspect]
     Active Substance: IDURSULFASE
     Dosage: 0.53 MILLIGRAM/KILOGRAM, 1/WEEK
     Route: 042
     Dates: start: 20120106
  6. MELATONIN [Concomitant]
     Active Substance: MELATONIN
     Indication: Sleep disorder
     Dosage: 2 MG, 1X/DAY:QD
     Route: 048
     Dates: start: 2011
  7. LAMOTRIGINE [Concomitant]
     Active Substance: LAMOTRIGINE
     Indication: Epilepsy
     Dosage: 10 MG, 1X/DAY:QD
     Route: 048
     Dates: start: 2010
  8. LAMOTRIGINE [Concomitant]
     Active Substance: LAMOTRIGINE
     Dosage: 15 MG, 1X/DAY:QD
     Route: 048
     Dates: start: 2010
  9. LEVETIRACETAM [Concomitant]
     Active Substance: LEVETIRACETAM
     Indication: Epilepsy
     Dosage: 1 G, 2X/DAY:BID
     Route: 048
     Dates: start: 2009
  10. VALPROIC ACID [Concomitant]
     Active Substance: VALPROIC ACID
     Indication: Epilepsy
     Dosage: 600 MG, 2X/DAY:BID
     Route: 048
     Dates: start: 2009

REACTIONS (1)
  - Frontal lobe epilepsy [Recovered/Resolved with Sequelae]

NARRATIVE: CASE EVENT DATE: 20120222
